FAERS Safety Report 10922681 (Version 1)
Quarter: 2015Q1

REPORT INFORMATION
  Report Type: Spontaneous
  Country: US (occurrence: None)
  Receive Date: 20150313
  Receipt Date: 20150313
  Transmission Date: 20150721
  Serious: Yes (Hospitalization)
  Sender: FDA-Public Use
  Company Number: 2015-000469

PATIENT
  Age: 23 Year
  Sex: Female

DRUGS (1)
  1. DORYX [Suspect]
     Active Substance: DOXYCYCLINE HYCLATE
     Route: 048
     Dates: start: 2014

REACTIONS (1)
  - Ulcer [None]

NARRATIVE: CASE EVENT DATE: 20150119
